FAERS Safety Report 9591027 (Version 1)
Quarter: 2013Q4

REPORT INFORMATION
  Report Type: Spontaneous
  Country: US (occurrence: US)
  Receive Date: 20131003
  Receipt Date: 20131003
  Transmission Date: 20140711
  Serious: No
  Sender: FDA-Public Use
  Company Number: US-AMGEN-USASP2012079685

PATIENT
  Age: 63 Year
  Sex: Male
  Weight: 97.51 kg

DRUGS (11)
  1. ENBREL [Suspect]
     Indication: RHEUMATOID ARTHRITIS
     Dosage: 50 MG, QWK
     Route: 058
  2. VALIUM                             /00017001/ [Concomitant]
     Dosage: 5 MG, UNK
  3. ZOLPIDEM [Concomitant]
     Dosage: 5 MG, UNK
  4. PREDNISONE [Concomitant]
     Dosage: 5 MG, UNK
  5. PLAQUENIL                          /00072602/ [Concomitant]
     Dosage: 200 MG, UNK
  6. DIOVAN [Concomitant]
     Dosage: 40 MG, UNK
  7. MULTIVITAMIN                       /00097801/ [Concomitant]
     Dosage: UNK
  8. VITAMIN B-12 [Concomitant]
     Dosage: 100 MUG, UNK
  9. VITAMIN B-6 [Concomitant]
     Dosage: 100 MG, UNK
  10. VITAMIN D                          /00107901/ [Concomitant]
     Dosage: 1000 UNIT, UNK
  11. CALCIUM + VIT D [Concomitant]
     Dosage: 600 TO 200

REACTIONS (3)
  - Ligament sprain [Unknown]
  - Fall [Unknown]
  - Wound infection [Unknown]
